FAERS Safety Report 25163476 (Version 2)
Quarter: 2025Q2

REPORT INFORMATION
  Report Type: Report from Study
  Country: CA (occurrence: CA)
  Receive Date: 20250404
  Receipt Date: 20250514
  Transmission Date: 20250716
  Serious: Yes (Hospitalization)
  Sender: ABBVIE
  Company Number: CA-ABBVIE-6207426

PATIENT
  Age: 92 Year
  Sex: Male

DRUGS (3)
  1. RINVOQ [Suspect]
     Active Substance: UPADACITINIB
     Indication: Dermatitis atopic
     Route: 048
  2. RINVOQ [Suspect]
     Active Substance: UPADACITINIB
     Indication: Dermatitis atopic
     Route: 048
     Dates: start: 20250227
  3. VENTOLIN [Concomitant]
     Active Substance: ALBUTEROL SULFATE
     Indication: Product used for unknown indication

REACTIONS (7)
  - Genital swelling [Recovered/Resolved]
  - Urinary tract infection [Recovered/Resolved]
  - Glaucoma [Unknown]
  - Respiratory disorder [Recovered/Resolved]
  - Failure to thrive [Unknown]
  - Chronic obstructive pulmonary disease [Unknown]
  - Hydrocele [Unknown]

NARRATIVE: CASE EVENT DATE: 20250301
